FAERS Safety Report 9333491 (Version 1)
Quarter: 2013Q2

REPORT INFORMATION
  Report Type: Spontaneous
  Country: FR (occurrence: FR)
  Receive Date: 20130606
  Receipt Date: 20130606
  Transmission Date: 20140414
  Serious: Yes (Other)
  Sender: FDA-Public Use
  Company Number: PHHY2013FR056985

PATIENT
  Age: 59 Year
  Sex: Female

DRUGS (3)
  1. GLIVEC [Suspect]
     Indication: ACUTE LYMPHOCYTIC LEUKAEMIA
     Dosage: 400 MG, QD
     Route: 048
     Dates: start: 20130404, end: 20130419
  2. CYTARABINE EBEWE [Suspect]
     Indication: ACUTE LYMPHOCYTIC LEUKAEMIA
     Dosage: 6 G, QD
     Route: 042
     Dates: start: 20130405, end: 20130406
  3. METHOTREXATE [Suspect]
     Indication: ACUTE LYMPHOCYTIC LEUKAEMIA
     Dosage: 2 G, QD
     Route: 042
     Dates: start: 20130204

REACTIONS (1)
  - Cerebellar syndrome [Recovered/Resolved]
